FAERS Safety Report 14186093 (Version 1)
Quarter: 2017Q4

REPORT INFORMATION
  Report Type: Spontaneous
  Country: US (occurrence: US)
  Receive Date: 20171114
  Receipt Date: 20171114
  Transmission Date: 20180321
  Serious: Yes (Other)
  Sender: FDA-Public Use
  Company Number: US-GLAXOSMITHKLINE-US2017GSK174081

PATIENT
  Age: 41 Year

DRUGS (2)
  1. VIMPAT [Suspect]
     Active Substance: LACOSAMIDE
  2. LAMICTAL [Suspect]
     Active Substance: LAMOTRIGINE

REACTIONS (7)
  - Focal dyscognitive seizures [Unknown]
  - Aura [Unknown]
  - Drug ineffective [Unknown]
  - Drug effect incomplete [Unknown]
  - Partial seizures [Unknown]
  - Brain lobectomy [Unknown]
  - Vagal nerve stimulator implantation [Unknown]

NARRATIVE: CASE EVENT DATE: 2004
